FAERS Safety Report 6582842-X (Version None)
Quarter: 2010Q1

REPORT INFORMATION
  Report Type: 
  Country: None (occurrence: None)
  Receive Date: 20100216
  Receipt Date: 20100205
  Transmission Date: 20100710
  Serious: Yes (Hospitalization, Other)
  Sender: FDA-Public Use
  Company Number: US-BAYER-201013568NA

PATIENT
  Sex: Female

DRUGS (1)
  1. MIRENA [Suspect]
     Indication: CONTRACEPTION
     Dosage: FERQUENCE: CONTINUOUS
     Route: 015
     Dates: start: 20070601, end: 20100204

REACTIONS (7)
  - ABASIA [None]
  - ABDOMINAL PAIN LOWER [None]
  - CAESAREAN SECTION [None]
  - ECTOPIC PREGNANCY [None]
  - PREGNANCY WITH CONTRACEPTIVE DEVICE [None]
  - PROCEDURAL PAIN [None]
  - UTERINE PERFORATION [None]
